FAERS Safety Report 16070698 (Version 1)
Quarter: 2019Q1

REPORT INFORMATION
  Report Type: Spontaneous
  Country: US (occurrence: US)
  Receive Date: 20190314
  Receipt Date: 20190314
  Transmission Date: 20190418
  Serious: Yes (Other)
  Sender: FDA-Public Use
  Company Number: US-ASTRAZENECA-2019SE09261

PATIENT
  Age: 22218 Day
  Sex: Female

DRUGS (26)
  1. CREON [Concomitant]
     Active Substance: PANCRELIPASE AMYLASE\PANCRELIPASE LIPASE\PANCRELIPASE PROTEASE
  2. CIPROFLOXACIN. [Concomitant]
     Active Substance: CIPROFLOXACIN
  3. LEVOFLOXACIN. [Concomitant]
     Active Substance: LEVOFLOXACIN
  4. SYMBICORT [Concomitant]
     Active Substance: BUDESONIDE\FORMOTEROL FUMARATE DIHYDRATE
  5. ATENOLOL, CHLORTALIDONE [Concomitant]
     Active Substance: ATENOLOL\CHLORTHALIDONE
  6. MELOXICAM. [Concomitant]
     Active Substance: MELOXICAM
  7. DULOXETINE. [Concomitant]
     Active Substance: DULOXETINE
  8. NEXIUM [Suspect]
     Active Substance: ESOMEPRAZOLE MAGNESIUM
     Route: 048
     Dates: start: 20131209
  9. LISINOPRIL. [Concomitant]
     Active Substance: LISINOPRIL
  10. FAMOTIDINE. [Concomitant]
     Active Substance: FAMOTIDINE
  11. CYMBALTA [Concomitant]
     Active Substance: DULOXETINE HYDROCHLORIDE
  12. TRAMADOL. [Concomitant]
     Active Substance: TRAMADOL
  13. LYRICA [Concomitant]
     Active Substance: PREGABALIN
  14. SIMVASTATIN. [Concomitant]
     Active Substance: SIMVASTATIN
  15. CETIRIZINE [Concomitant]
     Active Substance: CETIRIZINE HYDROCHLORIDE
  16. MONTELUKAST [Concomitant]
     Active Substance: MONTELUKAST SODIUM
  17. PENICILLIN VK [Concomitant]
     Active Substance: PENICILLIN V POTASSIUM
  18. LOSARTAN. [Concomitant]
     Active Substance: LOSARTAN
  19. ATENOLOL. [Concomitant]
     Active Substance: ATENOLOL
  20. BENZONATATE. [Concomitant]
     Active Substance: BENZONATATE
  21. AZITHROMYCIN ANHYDROUS. [Concomitant]
     Active Substance: AZITHROMYCIN ANHYDROUS
  22. NEXIUM [Suspect]
     Active Substance: ESOMEPRAZOLE MAGNESIUM
     Route: 048
     Dates: start: 199901
  23. PRILOSEC [Suspect]
     Active Substance: OMEPRAZOLE MAGNESIUM
     Route: 048
     Dates: start: 199901
  24. ACYCLOVIR. [Concomitant]
     Active Substance: ACYCLOVIR
  25. NASONEX [Concomitant]
     Active Substance: MOMETASONE FUROATE
  26. SULFAMETHOXAZOLE [Concomitant]
     Active Substance: SULFAMETHOXAZOLE

REACTIONS (3)
  - Renal failure [Unknown]
  - Acute kidney injury [Unknown]
  - Renal injury [Unknown]

NARRATIVE: CASE EVENT DATE: 20160413
